FAERS Safety Report 4638208-2 (Version None)
Quarter: 2005Q2

REPORT INFORMATION
  Report Type: 
  Country: None (occurrence: None)
  Receive Date: 20050418
  Receipt Date: 20050408
  Transmission Date: 20051028
  Serious: Yes (Hospitalization)
  Sender: FDA-Public Use
  Company Number: CA-ABBOTT-05P-028-0297204-00

PATIENT
  Sex: Female
  Weight: 59.02 kg

DRUGS (4)
  1. MAVIK [Suspect]
     Indication: DRUG USE FOR UNKNOWN INDICATION
     Route: 048
     Dates: start: 20041012, end: 20050114
  2. EFFEXOR XR [Concomitant]
     Indication: DEPRESSION
     Route: 048
     Dates: start: 20041223, end: 20050114
  3. TERBINAFINE HCL [Concomitant]
     Indication: ONYCHOMYCOSIS
     Route: 048
     Dates: start: 20041012, end: 20050114
  4. RISEDRONATE SODIUM [Concomitant]
     Indication: OSTEOPOROSIS
     Dosage: 1/SEM
     Dates: start: 20001123

REACTIONS (5)
  - RUPTURED CEREBRAL ANEURYSM [None]
  - SUBARACHNOID HAEMORRHAGE [None]
  - UNEVALUABLE EVENT [None]
  - URINARY TRACT INFECTION [None]
  - VASOSPASM [None]
